FAERS Safety Report 4596239-5 (Version None)
Quarter: 2005Q1

REPORT INFORMATION
  Report Type: 
  Country: None (occurrence: None)
  Receive Date: 20050225
  Receipt Date: 20050211
  Transmission Date: 20050727
  Serious: No
  Sender: FDA-Public Use
  Company Number: 2005UW02497

PATIENT
  Age: 16 Year
  Sex: Male
  Weight: 40 kg

DRUGS (28)
  1. TOPROL-XL [Suspect]
     Indication: HYPERTENSION
     Dosage: 25 MG QD PO
     Route: 048
     Dates: start: 20041011, end: 20041014
  2. TOPROL-XL [Suspect]
     Indication: HYPERTENSION
     Dosage: 12.5 MG QD PO
     Route: 048
     Dates: start: 20041021, end: 20041024
  3. ASCORBIC ACID [Concomitant]
  4. CALCIUM GLUBIONATE [Concomitant]
  5. CETIRIZINE HCL [Concomitant]
  6. COLECALCIFEROL [Concomitant]
  7. CITALOPRAM [Concomitant]
  8. CLONIDINE [Concomitant]
  9. COPPER GLUCONATE [Concomitant]
  10. DICALCIUM GLUCONATE [Concomitant]
  11. GREEN TREE EXTRACT [Concomitant]
  12. HYDROMORPHONE HCL [Concomitant]
  13. METOCLOPRAMIDE [Concomitant]
  14. PHYTONADIONE [Concomitant]
  15. RANITIDINE [Concomitant]
  16. SELENIUM TRACE METAL ADDITIVE [Concomitant]
  17. HUMATROPE [Concomitant]
  18. VITAMIN E [Concomitant]
  19. EPOGEN [Concomitant]
  20. TPN [Concomitant]
  21. ZOSYN [Concomitant]
  22. FERRIC GLUCONATE [Concomitant]
  23. ECONAZOLE [Concomitant]
  24. PANTOPRAZOLE [Concomitant]
  25. TPN [Concomitant]
  26. BACTROBAN [Concomitant]
  27. GABAPENTIN [Concomitant]
  28. SOMATREM [Concomitant]

REACTIONS (1)
  - ARRHYTHMIA [None]
